FAERS Safety Report 13688402 (Version 1)
Quarter: 2017Q2

REPORT INFORMATION
  Report Type: Spontaneous
  Country: US (occurrence: US)
  Receive Date: 20170623
  Receipt Date: 20170623
  Transmission Date: 20170830
  Serious: Yes (Death)
  Sender: FDA-Public Use
  Company Number: None

PATIENT
  Age: 3 Month
  Sex: Male
  Weight: 4.9 kg

DRUGS (3)
  1. CYTARABINE. [Suspect]
     Active Substance: CYTARABINE
     Dates: end: 20170616
  2. DAUNORUBICIN [Suspect]
     Active Substance: DAUNORUBICIN
     Dates: end: 20170611
  3. ETOPOSIDE (VP-16) [Suspect]
     Active Substance: ETOPOSIDE
     Dates: end: 20170611

REACTIONS (14)
  - Pain [None]
  - Cardio-respiratory arrest [None]
  - Haemoglobin decreased [None]
  - Respiratory failure [None]
  - Pyrexia [None]
  - Hypophagia [None]
  - Agitation [None]
  - Subdural haemorrhage [None]
  - Septic shock [None]
  - Tachycardia [None]
  - Nausea [None]
  - Platelet count decreased [None]
  - Subarachnoid haemorrhage [None]
  - Nasal congestion [None]

NARRATIVE: CASE EVENT DATE: 20170617
